FAERS Safety Report 4944058-X (Version None)
Quarter: 2006Q1

REPORT INFORMATION
  Report Type: 
  Country: None (occurrence: None)
  Receive Date: 20060315
  Receipt Date: 20060306
  Transmission Date: 20060701
  Serious: Yes (Other)
  Sender: FDA-Public Use
  Company Number: EG-JNJFOC-20060301723

PATIENT
  Age: 28 Year
  Sex: Male

DRUGS (2)
  1. TOPAMAX [Suspect]
     Indication: GRAND MAL CONVULSION
     Route: 048
  2. TEGRETOL [Concomitant]
     Indication: GRAND MAL CONVULSION
     Route: 048

REACTIONS (1)
  - OPTIC ATROPHY [None]
